FAERS Safety Report 5796389-1 (Version None)
Quarter: 2008Q2

REPORT INFORMATION
  Report Type: 
  Country: None (occurrence: None)
  Receive Date: 20080627
  Receipt Date: 20080618
  Transmission Date: 20081010
  Serious: Yes (Life-Threatening, Hospitalization, Disabling)
  Sender: FDA-Public Use
  Company Number: 163-21880-08061139

PATIENT
  Age: 68 Year
  Sex: Female

DRUGS (1)
  1. REVLIMID [Suspect]
     Indication: MULTIPLE MYELOMA
     Dosage: 10 MG, 1 IN 1 D, ORAL
     Route: 048
     Dates: start: 20080505, end: 20080601

REACTIONS (8)
  - CARDIAC INFECTION [None]
  - KIDNEY INFECTION [None]
  - LUNG INFECTION [None]
  - MEMORY IMPAIRMENT [None]
  - MUSCULAR WEAKNESS [None]
  - OESOPHAGITIS [None]
  - RESPIRATORY ARREST [None]
  - SPINAL FRACTURE [None]
